FAERS Safety Report 14639349 (Version 1)
Quarter: 2018Q1

REPORT INFORMATION
  Report Type: Spontaneous
  Country: FR (occurrence: FR)
  Receive Date: 20180315
  Receipt Date: 20180315
  Transmission Date: 20180509
  Serious: Yes (Other)
  Sender: FDA-Public Use
  Company Number: FR-MERCK KGAA-2043773

PATIENT
  Age: 44 Year
  Sex: Female

DRUGS (1)
  1. NOVOTHYROX [Suspect]
     Active Substance: LEVOTHYROXINE SODIUM
     Indication: PRODUCT USED FOR UNKNOWN INDICATION

REACTIONS (12)
  - Fatigue [None]
  - Headache [None]
  - Asthenia [None]
  - Decreased interest [None]
  - Insomnia [None]
  - Dizziness [None]
  - Mood altered [None]
  - Nervousness [None]
  - Migraine [None]
  - Sleep disorder [None]
  - Myalgia [None]
  - Alopecia [None]

NARRATIVE: CASE EVENT DATE: 201707
